FAERS Safety Report 4356637-1 (Version None)
Quarter: 2004Q2

REPORT INFORMATION
  Report Type: 
  Country: None (occurrence: None)
  Receive Date: 20040507
  Receipt Date: 20040426
  Transmission Date: 20050107
  Serious: Yes (Life-Threatening)
  Sender: FDA-Public Use
  Company Number: 2004GB01014

PATIENT
  Age: 61 Year
  Sex: Female

DRUGS (2)
  1. QUETIAPINE [Suspect]
     Indication: PSYCHOTIC DISORDER
     Dosage: 50 MG BID PO
     Route: 048
     Dates: start: 20040316, end: 20040416
  2. DONEPEZIL HCL [Concomitant]

REACTIONS (1)
  - NEUTROPENIA [None]
